FAERS Safety Report 12421220 (Version 9)
Quarter: 2017Q1

REPORT INFORMATION
  Report Type: Report from Study
  Country: IL (occurrence: IL)
  Receive Date: 20160531
  Receipt Date: 20170322
  Transmission Date: 20170428
  Serious: Yes (Life-Threatening, Other)
  Sender: FDA-Public Use
  Company Number: PHHO2016IL007815

PATIENT
  Age: 59 Year
  Sex: Male

DRUGS (4)
  1. TRAMETINIB [Suspect]
     Active Substance: TRAMETINIB
     Indication: MALIGNANT MELANOMA
     Dosage: 1 MG, UNK
     Route: 048
     Dates: start: 20121230
  2. DABRAFENIB [Suspect]
     Active Substance: DABRAFENIB
     Dosage: UNK
     Route: 048
  3. DABRAFENIB [Suspect]
     Active Substance: DABRAFENIB
     Indication: MALIGNANT MELANOMA
     Dosage: 150 MG, UNK
     Route: 048
     Dates: start: 20121230
  4. TRAMETINIB [Suspect]
     Active Substance: TRAMETINIB
     Dosage: UNK
     Route: 048

REACTIONS (2)
  - Retinal tear [Recovered/Resolved]
  - Vitreous detachment [Recovered/Resolved]

NARRATIVE: CASE EVENT DATE: 20160526
